FAERS Safety Report 17470112 (Version 4)
Quarter: 2020Q2

REPORT INFORMATION
  Report Type: Spontaneous
  Country: FR (occurrence: FR)
  Receive Date: 20200227
  Receipt Date: 20200521
  Transmission Date: 20200713
  Serious: Yes (Other)
  Sender: FDA-Public Use
  Company Number: FR-009507513-2002FRA009916

PATIENT
  Age: 54 Year
  Sex: Male
  Weight: 81 kg

DRUGS (11)
  1. MYFORTIC [Suspect]
     Active Substance: MYCOPHENOLATE SODIUM
     Indication: RENAL TRANSPLANT
     Dosage: 1 DOSAGE FORM, QD
     Route: 048
     Dates: start: 2019, end: 20191016
  2. BISOCE [Concomitant]
     Active Substance: BISOPROLOL
     Dosage: 2.5 MILLIGRAM, UNKNOWN
  3. WELLVONE [Concomitant]
     Active Substance: ATOVAQUONE
     Dosage: 750/5 MG/ML, UNKNOWN
  4. ADVAGRAF [Concomitant]
     Active Substance: TACROLIMUS
     Dosage: UNK UNK, UNKNOWN
  5. SOLUPRED [Concomitant]
     Dosage: 5 MILLIGRAM, UNKNOWN
  6. TIENAM 500MG/500MG, POUDRE POUR PERFUSION [Concomitant]
     Active Substance: CILASTATIN SODIUM\IMIPENEM
     Dosage: UNK
     Dates: start: 20190930, end: 20191014
  7. KARDEGIC [Concomitant]
     Active Substance: ASPIRIN DL-LYSINE
     Dosage: 75 MILLIGRAM, UNKNOWN
  8. ATORVASTATIN [Concomitant]
     Active Substance: ATORVASTATIN
     Dosage: UNK UNK, UNKNOWN
  9. LOVENOX [Concomitant]
     Active Substance: ENOXAPARIN SODIUM
     Dosage: UNK UNK, UNKNOWN
  10. AUGMENTIN [Concomitant]
     Active Substance: AMOXICILLIN\CLAVULANATE POTASSIUM
     Dosage: UNK
     Dates: start: 20190912, end: 20190930
  11. DAPTOMYCIN. [Suspect]
     Active Substance: DAPTOMYCIN
     Indication: OSTEOMYELITIS
     Dosage: 700 MILLIGRAM, QD
     Route: 065
     Dates: start: 20190930

REACTIONS (1)
  - Neutropenia [Recovered/Resolved]

NARRATIVE: CASE EVENT DATE: 20191014
